FAERS Safety Report 4609731-1 (Version None)
Quarter: 2005Q1

REPORT INFORMATION
  Report Type: 
  Country: None (occurrence: None)
  Receive Date: 20050314
  Receipt Date: 20050314
  Transmission Date: 20050727
  Serious: Yes (Hospitalization)
  Sender: FDA-Public Use
  Company Number: None

PATIENT
  Age: 66 Year
  Sex: Female
  Weight: 95 kg

DRUGS (9)
  1. AVALIDE [Suspect]
     Indication: HYPERTENSION
     Dosage: 150MG/12.5MG DAILY ORAL
     Route: 048
  2. NORVASC [Concomitant]
  3. LIPITOR [Concomitant]
  4. HYDROCHLOROTHIAZIDE [Concomitant]
  5. XANAX [Concomitant]
  6. PREVACID [Concomitant]
  7. TRENTAL [Concomitant]
  8. AGGRENOX [Concomitant]
  9. STARLIX [Concomitant]

REACTIONS (5)
  - DYSPHAGIA [None]
  - DYSPNOEA [None]
  - FACE OEDEMA [None]
  - SWELLING FACE [None]
  - SWOLLEN TONGUE [None]
